FAERS Safety Report 8807026 (Version 2)
Quarter: 2013Q2

REPORT INFORMATION
  Report Type: Report from Study
  Country: MX (occurrence: MX)
  Receive Date: 20120925
  Receipt Date: 20130521
  Transmission Date: 20140414
  Serious: Yes (Hospitalization)
  Sender: FDA-Public Use
  Company Number: PHHY2012MX081709

PATIENT
  Age: 79 Year
  Sex: Male

DRUGS (3)
  1. EXFORGE HCT [Suspect]
     Indication: HYPERTENSION
     Dosage: 1 TABLET (320 MG VALS/10MG AMLO/25 MG HYDRO) PER DAY
     Route: 048
     Dates: start: 20100430
  2. EXFORGE HCT [Suspect]
     Dosage: 0.5 TABLET(320 MG VALS/10MG AMLO/25 MG HYDRO) PER DAY
     Route: 048
     Dates: start: 201208
  3. COMBODART [Concomitant]
     Indication: RASH PUSTULAR
     Dosage: 1 DF, DAILY
     Dates: start: 201304

REACTIONS (5)
  - Renal disorder [Not Recovered/Not Resolved]
  - Impaired healing [Not Recovered/Not Resolved]
  - Rash pustular [Not Recovered/Not Resolved]
  - Rash generalised [Not Recovered/Not Resolved]
  - Wrong technique in drug usage process [Not Recovered/Not Resolved]
